FAERS Safety Report 10174789 (Version 2)
Quarter: 2014Q2

REPORT INFORMATION
  Report Type: Spontaneous
  Country: JP (occurrence: JP)
  Receive Date: 20140515
  Receipt Date: 20140612
  Transmission Date: 20141212
  Serious: Yes (Hospitalization)
  Sender: FDA-Public Use
  Company Number: JP-SA-2014SA059980

PATIENT
  Age: 84 Year
  Sex: Male
  Weight: 50 kg

DRUGS (6)
  1. TAXOTERE [Suspect]
     Indication: ANAPLASTIC THYROID CANCER
     Route: 042
  2. TAXOTERE [Suspect]
     Indication: ANAPLASTIC THYROID CANCER
     Route: 042
  3. LEVOTHYROXINE [Concomitant]
  4. NIFEDIPINE [Concomitant]
  5. TEMOCAPRIL [Concomitant]
  6. THERAPEUTIC RADIOPHARMACEUTICALS [Concomitant]
     Indication: THYROID CANCER METASTATIC

REACTIONS (9)
  - Interstitial lung disease [Unknown]
  - Pyrexia [Unknown]
  - White blood cell count increased [Unknown]
  - C-reactive protein increased [Unknown]
  - Dyspnoea [Unknown]
  - Oesophageal haemorrhage [Recovered/Resolved]
  - Haematemesis [Recovered/Resolved]
  - Melaena [Recovered/Resolved]
  - Faeces discoloured [Recovered/Resolved]
